FAERS Safety Report 4897387-2 (Version None)
Quarter: 2006Q1

REPORT INFORMATION
  Report Type: 
  Country: None (occurrence: None)
  Receive Date: 20060130
  Receipt Date: 20060130
  Transmission Date: 20060701
  Serious: Yes (Other)
  Sender: FDA-Public Use
  Company Number: None

PATIENT
  Age: 37 Year
  Sex: Male
  Weight: 60.3284 kg

DRUGS (5)
  1. TARGRETIN [Suspect]
     Indication: COLORECTAL CANCER METASTATIC
     Dosage: 10 CAP QD PO
     Route: 048
     Dates: start: 20051014, end: 20051028
  2. TAXOTERE [Suspect]
     Dosage: 30MG/M2=54MG    Q WKX3/4 WEEK   IV DRIP
     Route: 041
     Dates: start: 20051014, end: 20051115
  3. OXYCODONE [Concomitant]
  4. PERCOCET [Concomitant]
  5. IRON INFUSION [Concomitant]

REACTIONS (3)
  - FATIGUE [None]
  - PARACENTESIS [None]
  - PERFORMANCE STATUS DECREASED [None]
